FAERS Safety Report 12605658 (Version 2)
Quarter: 2016Q3

REPORT INFORMATION
  Report Type: Report from Study
  Country: CA (occurrence: CA)
  Receive Date: 20160729
  Receipt Date: 20160816
  Transmission Date: 20161109
  Serious: Yes (Hospitalization)
  Sender: FDA-Public Use
  Company Number: CA-ROCHE-1802630

PATIENT
  Sex: Male
  Weight: 92 kg

DRUGS (9)
  1. BEVACIZUMAB [Suspect]
     Active Substance: BEVACIZUMAB
     Indication: GLIOBLASTOMA MULTIFORME
     Route: 042
     Dates: start: 20160202, end: 20160705
  2. MARIZOMIB [Suspect]
     Active Substance: MARIZOMIB
     Indication: GLIOBLASTOMA MULTIFORME
     Dosage: 1,8 AND 15 OF EVERY 28 DAY CYCLE.
     Route: 042
     Dates: start: 20160202, end: 20160705
  3. TYLENOL [Concomitant]
     Active Substance: ACETAMINOPHEN
     Route: 065
     Dates: start: 20160503
  4. DECADRON [Concomitant]
     Active Substance: DEXAMETHASONE
     Route: 065
     Dates: start: 20160603
  5. KEPPRA [Concomitant]
     Active Substance: LEVETIRACETAM
     Route: 065
     Dates: start: 201410
  6. POLYSPORIN (GRAMICIDIN/POLYMYXIN B SULFATE) [Concomitant]
     Active Substance: GRAMICIDIN\POLYMYXIN B
     Route: 065
     Dates: start: 20160513
  7. PANTOLOC [Concomitant]
     Active Substance: PANTOPRAZOLE SODIUM
     Route: 065
     Dates: start: 20160606
  8. STEMETIL [Concomitant]
     Active Substance: PROCHLORPERAZINE MALEATE
     Route: 065
     Dates: start: 20160330
  9. ONDANSETRON [Concomitant]
     Active Substance: ONDANSETRON
     Route: 065
     Dates: start: 20160523

REACTIONS (3)
  - Headache [Unknown]
  - Hemiparesis [Unknown]
  - Hypertension [Unknown]
